FAERS Safety Report 8515094-1 (Version None)
Quarter: 2012Q3

REPORT INFORMATION
  Report Type: 
  Country: None (occurrence: None)
  Receive Date: 20120717
  Receipt Date: 20120706
  Transmission Date: 20120928
  Serious: Yes (Other)
  Sender: FDA-Public Use
  Company Number: JP-VERTEX PHARMACEUTICALS INC.-AE-2012-010163

PATIENT
  Age: 70 Year
  Sex: Female

DRUGS (9)
  1. TELAVIC (TELAPREVIR) [Suspect]
     Indication: HEPATITIS C
     Route: 048
     Dates: start: 20120515
  2. TRICHLORMETHIAZIDE [Concomitant]
     Route: 048
  3. RIBAVIRIN [Concomitant]
     Indication: HEPATITIS C
     Route: 048
     Dates: start: 20120515
  4. AMLODIPINE [Concomitant]
     Route: 048
  5. XYZAL [Concomitant]
     Route: 048
     Dates: start: 20120515
  6. L-CARTIN [Concomitant]
     Route: 048
     Dates: start: 20120515
  7. PEGINTERFERON ALFA-2B [Concomitant]
     Indication: HEPATITIS C
     Route: 058
     Dates: start: 20120515
  8. FAMOTIDINE [Concomitant]
     Route: 048
  9. DIOVAN [Concomitant]
     Route: 048

REACTIONS (2)
  - RENAL DISORDER [None]
  - BLOOD UREA INCREASED [None]
